FAERS Safety Report 10560152 (Version 2)
Quarter: 2014Q4

REPORT INFORMATION
  Report Type: Report from Study
  Country: DE (occurrence: DE)
  Receive Date: 20141103
  Receipt Date: 20141103
  Transmission Date: 20150529
  Serious: Yes (Other)
  Sender: FDA-Public Use
  Company Number: DE-BAYER-2014-149654

PATIENT
  Age: 51 Year
  Sex: Male
  Weight: 69 kg

DRUGS (1)
  1. BETAFERON [Suspect]
     Active Substance: INTERFERON BETA-1B
     Indication: MULTIPLE SCLEROSIS
     Dosage: 250 ?G, QOD
     Route: 058
     Dates: start: 20070301

REACTIONS (5)
  - Necrosis [None]
  - Local reaction [None]
  - Injection site abscess [Recovered/Resolved]
  - Muscle disorder [Not Recovered/Not Resolved]
  - Injection site abscess [None]

NARRATIVE: CASE EVENT DATE: 201410
